FAERS Safety Report 8942891 (Version 1)
Quarter: 2012Q4

REPORT INFORMATION
  Report Type: 
  Country: US (occurrence: US)
  Receive Date: 20121204
  Receipt Date: 20121204
  Transmission Date: 20130627
  Serious: No
  Sender: FDA-Public Use
  Company Number: US-BAYER-2012-118428

PATIENT
  Sex: Male

DRUGS (1)
  1. STAXYN (FDT/ODT) [Suspect]

REACTIONS (3)
  - Drug ineffective [None]
  - Abdominal discomfort [None]
  - Headache [None]
